FAERS Safety Report 6959472-0 (Version None)
Quarter: 2010Q3

REPORT INFORMATION
  Report Type: 
  Country: None (occurrence: None)
  Receive Date: 20100827
  Receipt Date: 20100817
  Transmission Date: 20110219
  Serious: Yes (Death)
  Sender: FDA-Public Use
  Company Number: 2010104436

PATIENT
  Age: 58 Year
  Sex: Female
  Weight: 76.2 kg

DRUGS (1)
  1. FRAGMIN [Suspect]
     Dates: start: 20100705, end: 20100722

REACTIONS (1)
  - PANCREATIC CARCINOMA [None]
